FAERS Safety Report 25016193 (Version 1)
Quarter: 2025Q1

REPORT INFORMATION
  Report Type: Report from Study
  Country: CA (occurrence: CA)
  Receive Date: 20250227
  Receipt Date: 20250227
  Transmission Date: 20250408
  Serious: Yes (Other)
  Sender: JOHNSON AND JOHNSON
  Company Number: CA-JNJFOC-20250133149

PATIENT
  Sex: Female

DRUGS (1)
  1. SIMPONI [Suspect]
     Active Substance: GOLIMUMAB
     Indication: Rheumatoid arthritis
     Dosage: EXPIRATION DATE: JN2027
     Route: 058
     Dates: start: 20240903

REACTIONS (6)
  - Rheumatoid arthritis [Unknown]
  - Sinusitis [Not Recovered/Not Resolved]
  - Eye pain [Unknown]
  - Attention deficit hyperactivity disorder [Unknown]
  - Anxiety [Unknown]
  - Insomnia [Unknown]
